FAERS Safety Report 9434461 (Version 1)
Quarter: 2013Q3

REPORT INFORMATION
  Report Type: Spontaneous
  Country: US (occurrence: None)
  Receive Date: 20130729
  Receipt Date: 20130729
  Transmission Date: 20140515
  Serious: Yes (Disabling, Other)
  Sender: FDA-Public Use
  Company Number: ACO_37491_2013

PATIENT
  Age: 63 Year
  Sex: Female
  Weight: 56.7 kg

DRUGS (6)
  1. AMPYRA (DALFAMPRIDINE) TABLET, 10MG [Suspect]
     Indication: GAIT DISTURBANCE
     Route: 048
     Dates: start: 20130715, end: 20130716
  2. JANUVIA (SITAGLIPTIN PHOSPHATE) [Concomitant]
  3. METFORMIN (METFORMIN HYDROCHLORIDE) [Concomitant]
  4. AVAPRO (IRBESARTAN) [Concomitant]
  5. MULTIVITAMIN (VITAMIN NOS) [Concomitant]
  6. CALCIUM WITH VITAMIN D (CALCIUM CARBONATE, COLECALCIFEROL) [Concomitant]

REACTIONS (9)
  - Urinary retention [None]
  - Blood glucose decreased [None]
  - Malaise [None]
  - Hypoaesthesia [None]
  - Hypoaesthesia oral [None]
  - Bladder discomfort [None]
  - Dizziness [None]
  - Nausea [None]
  - Back pain [None]
